FAERS Safety Report 6553711-6 (Version None)
Quarter: 2010Q1

REPORT INFORMATION
  Report Type: 
  Country: None (occurrence: None)
  Receive Date: 20100127
  Receipt Date: 20100122
  Transmission Date: 20100710
  Serious: Yes (Hospitalization, Other)
  Sender: FDA-Public Use
  Company Number: DE-BAYER-201013300GPV

PATIENT
  Age: 50 Year
  Sex: Female

DRUGS (4)
  1. AVELOX [Suspect]
     Indication: PNEUMONIA
     Route: 065
     Dates: start: 20100114, end: 20100120
  2. OMEPRAZOL [Concomitant]
     Route: 065
  3. CANCIDAS [Concomitant]
     Route: 065
     Dates: start: 20100118, end: 20100122
  4. BELOC ZOK [Concomitant]
     Route: 065

REACTIONS (1)
  - LARGE INTESTINE PERFORATION [None]
